FAERS Safety Report 12154642 (Version 1)
Quarter: 2016Q1

REPORT INFORMATION
  Report Type: Spontaneous
  Country: ID (occurrence: ID)
  Receive Date: 20160307
  Receipt Date: 20160307
  Transmission Date: 20160526
  Serious: Yes (Death, Other)
  Sender: FDA-Public Use
  Company Number: ID-009507513-1603IDN003223

PATIENT

DRUGS (1)
  1. DEXAMETHASONE. [Suspect]
     Active Substance: DEXAMETHASONE
     Indication: TOXIC EPIDERMAL NECROLYSIS
     Dosage: UNK, EQUAL TO 4-6 MG/KG PREDNISONE PER DAY
     Route: 042

REACTIONS (1)
  - Sepsis [Fatal]
